FAERS Safety Report 13679427 (Version 2)
Quarter: 2017Q3

REPORT INFORMATION
  Report Type: Report from Study
  Country: CA (occurrence: CA)
  Receive Date: 20170622
  Receipt Date: 20170704
  Transmission Date: 20171127
  Serious: Yes (Other)
  Sender: FDA-Public Use
  Company Number: CA-AMGEN-CANSL2017092140

PATIENT
  Age: 71 Year
  Sex: Female
  Weight: 54.4 kg

DRUGS (18)
  1. CALCIUM [Concomitant]
     Active Substance: CALCIUM
  2. HYDROCORTISONE. [Concomitant]
     Active Substance: HYDROCORTISONE
     Dosage: 1 % CREAM, BID SPARINGLY PRN
     Dates: start: 20170529
  3. PROLIA [Suspect]
     Active Substance: DENOSUMAB
     Indication: OSTEOPOROSIS POSTMENOPAUSAL
     Dosage: 60 MG/ML, Q6MO
     Route: 058
     Dates: start: 20150109
  4. VITAMIN D [Concomitant]
     Active Substance: CHOLECALCIFEROL
  5. PROLIA [Suspect]
     Active Substance: DENOSUMAB
     Dosage: 60 MG/ML, Q6MO
     Route: 058
     Dates: start: 20160106
  6. PROLIA [Suspect]
     Active Substance: DENOSUMAB
     Dosage: 60 MG/ML, Q6MO
     Route: 058
     Dates: start: 20170107
  7. PATADAY [Concomitant]
     Active Substance: OLOPATADINE HYDROCHLORIDE
     Indication: CONJUNCTIVITIS ALLERGIC
     Dosage: 0.2 %, 1 DROP QD
     Dates: start: 20150519
  8. PROLIA [Suspect]
     Active Substance: DENOSUMAB
     Dosage: 60 MG/ML, Q6MO
     Route: 058
     Dates: start: 20150707
  9. GINKGO [Concomitant]
     Active Substance: GINKGO
  10. PRIMROSE OIL [Concomitant]
  11. CLARITIN [Concomitant]
     Active Substance: LORATADINE
     Dosage: 10 MG, QD (30 TABLETS)
     Route: 048
     Dates: start: 20150519
  12. SWINE FLU VACCINE (1976), MONOVALENT [Concomitant]
     Dosage: UNK
     Dates: start: 20151103
  13. MULTIVITAMIN [Concomitant]
     Active Substance: VITAMINS
     Dosage: UNK UNK, QD
     Route: 048
     Dates: start: 20100302
  14. CALCIUM CARBONATE. [Concomitant]
     Active Substance: CALCIUM CARBONATE
     Dosage: 500 MG, QD
     Route: 048
     Dates: start: 20150519
  15. FUCIDIN [Concomitant]
     Active Substance: FUSIDIC ACID
     Dosage: 2 %, BID
     Dates: start: 20170529
  16. PROLIA [Suspect]
     Active Substance: DENOSUMAB
     Dosage: 60 MG/ML, Q6MO
     Route: 058
     Dates: start: 20160707
  17. NASONEX [Concomitant]
     Active Substance: MOMETASONE FUROATE
     Dosage: 50 MUG, 2 SPRAYS QD
     Dates: start: 20150519
  18. ALENDRONATE [Concomitant]
     Active Substance: ALENDRONATE SODIUM
     Dosage: UNK

REACTIONS (5)
  - Piriformis syndrome [Unknown]
  - Gait disturbance [Recovering/Resolving]
  - Atypical femur fracture [Recovering/Resolving]
  - Sciatica [Recovered/Resolved]
  - Periarthritis [Not Recovered/Not Resolved]

NARRATIVE: CASE EVENT DATE: 2016
